FAERS Safety Report 9841107 (Version 3)
Quarter: 2014Q1

REPORT INFORMATION
  Report Type: Spontaneous
  Country: JP (occurrence: JP)
  Receive Date: 20140124
  Receipt Date: 20140205
  Transmission Date: 20141002
  Serious: Yes (Hospitalization, Other)
  Sender: FDA-Public Use
  Company Number: JP-PFIZER INC-2013331643

PATIENT
  Age: 65 Year
  Sex: Male
  Weight: 82 kg

DRUGS (14)
  1. TORISEL [Suspect]
     Indication: RENAL CELL CARCINOMA RECURRENT
     Dosage: 25 MG, WEEKLY
     Route: 041
     Dates: start: 20131015, end: 20131105
  2. BACTRAMIN [Suspect]
     Dosage: 2 DF, 1X/DAY
     Route: 048
     Dates: start: 20131116, end: 20131117
  3. BACTRAMIN [Suspect]
     Dosage: 3 TABLETS, 1X/DAY
     Route: 048
     Dates: start: 20131118, end: 20131127
  4. LOXOPROFEN [Concomitant]
     Indication: CANCER PAIN
     Dosage: 60 MG, 3X/DAY
     Route: 048
     Dates: start: 20130720
  5. LANSOPRAZOLE [Concomitant]
     Indication: PROPHYLAXIS AGAINST GASTROINTESTINAL ULCER
     Dosage: 30 MG, 1X/DAY
     Route: 048
     Dates: start: 20131016
  6. MAGMITT [Concomitant]
     Indication: CONSTIPATION
     Dosage: 330 MG, 3X/DAY
     Route: 048
     Dates: start: 20130825
  7. REBAMIPIDE [Concomitant]
     Indication: PROPHYLAXIS AGAINST GASTROINTESTINAL ULCER
     Dosage: 100 MG, 3X/DAY
     Route: 048
     Dates: start: 20130720
  8. WARKMIN [Concomitant]
     Indication: BONE CANCER METASTATIC
     Dosage: 0.5 UG, 1X/DAY
     Route: 048
     Dates: start: 20131016
  9. AMOBANTES [Concomitant]
     Indication: INSOMNIA
     Dosage: 7.5 MG, 1X/DAY
     Route: 048
     Dates: start: 20131022
  10. RINDERON [Concomitant]
     Indication: INFLAMMATION
     Dosage: 0.5 MG, 2X/DAY
     Route: 048
     Dates: start: 20131016
  11. AMLODIPINE [Concomitant]
     Indication: HYPERTENSION
     Dosage: 5 MG, 1X/DAY
     Route: 048
     Dates: start: 20131016
  12. LASIX [Concomitant]
     Indication: OEDEMA
     Dosage: 10 MG, 1X/DAY
     Route: 048
     Dates: start: 20131022, end: 20131105
  13. LASIX [Concomitant]
     Dosage: 10 MG, ALTERNATE DAY
     Route: 048
     Dates: start: 20131106, end: 20131129
  14. ZOMETA [Concomitant]
     Indication: BONE CANCER METASTATIC
     Dosage: 4 MG, 1X/DAY
     Route: 041
     Dates: start: 20131022, end: 20131022

REACTIONS (5)
  - Interstitial lung disease [Recovering/Resolving]
  - Pneumocystis jirovecii pneumonia [Recovered/Resolved]
  - Pancytopenia [Recovering/Resolving]
  - Hyperkalaemia [Unknown]
  - Renal disorder [Unknown]
